FAERS Safety Report 7690159-5 (Version None)
Quarter: 2011Q3

REPORT INFORMATION
  Report Type: 
  Country: None (occurrence: None)
  Receive Date: 20110818
  Receipt Date: 20110808
  Transmission Date: 20111222
  Serious: Yes (Other)
  Sender: FDA-Public Use
  Company Number: US-JNJFOC-20110805008

PATIENT
  Sex: Male
  Weight: 73.94 kg

DRUGS (4)
  1. DURAGESIC-100 [Suspect]
     Route: 062
     Dates: start: 20110601
  2. PERCOCET [Concomitant]
     Indication: PAIN
     Route: 048
  3. XANAX [Concomitant]
     Indication: SLEEP DISORDER
     Route: 048
  4. DURAGESIC-100 [Suspect]
     Indication: BACK DISORDER
     Route: 062

REACTIONS (8)
  - WEIGHT INCREASED [None]
  - TREATMENT NONCOMPLIANCE [None]
  - DEPENDENCE [None]
  - FEELING HOT [None]
  - THERAPEUTIC RESPONSE INCREASED [None]
  - THERAPEUTIC RESPONSE DECREASED [None]
  - INSOMNIA [None]
  - PRODUCT ADHESION ISSUE [None]
